FAERS Safety Report 8328709-8 (Version None)
Quarter: 2012Q2

REPORT INFORMATION
  Report Type: 
  Country: None (occurrence: None)
  Receive Date: 20120502
  Receipt Date: 20100825
  Transmission Date: 20120825
  Serious: No
  Sender: FDA-Public Use
  Company Number: US-TEVA-2010004551

PATIENT
  Sex: Male
  Weight: 79 kg

DRUGS (2)
  1. NUVIGIL [Suspect]
     Dosage: 400 MILLIGRAM;
     Route: 048
     Dates: start: 20080401
  2. NUVIGIL [Suspect]
     Route: 048

REACTIONS (1)
  - MALAISE [None]
